FAERS Safety Report 6785970-9 (Version None)
Quarter: 2010Q2

REPORT INFORMATION
  Report Type: 
  Country: None (occurrence: None)
  Receive Date: 20100623
  Receipt Date: 20100617
  Transmission Date: 20101027
  Serious: Yes (Death, Hospitalization)
  Sender: FDA-Public Use
  Company Number: PT-CELGENEUS-130-C5013-10061828

PATIENT
  Sex: Male
  Weight: 67 kg

DRUGS (10)
  1. CC-5013 [Suspect]
     Indication: MULTIPLE MYELOMA
     Route: 048
     Dates: start: 20100531, end: 20100617
  2. DEXAMETHASONE ACETATE [Suspect]
     Indication: MULTIPLE MYELOMA
     Route: 065
     Dates: start: 20100531, end: 20100617
  3. OMEPRAZOLE [Concomitant]
     Indication: PROPHYLAXIS
     Route: 048
     Dates: start: 20100422
  4. ALLOPURINOL [Concomitant]
     Route: 048
     Dates: start: 20100422
  5. LOSARTAN [Concomitant]
     Indication: HYPERTENSION
     Route: 048
  6. METOCLOPRAMIDE [Concomitant]
     Indication: NAUSEA
     Route: 048
     Dates: start: 20100531
  7. TRAMADOL [Concomitant]
     Indication: PAIN
     Route: 048
     Dates: start: 20100611
  8. MICOSTATIN [Concomitant]
     Route: 065
     Dates: start: 20100531
  9. PALMIDRONATE [Concomitant]
     Indication: DRUG USE FOR UNKNOWN INDICATION
     Route: 051
     Dates: start: 20100528
  10. LOVENOX [Concomitant]
     Indication: THROMBOSIS PROPHYLAXIS
     Route: 051
     Dates: start: 20100531

REACTIONS (3)
  - HYPOXIA [None]
  - PULMONARY EMBOLISM [None]
  - PULMONARY HYPERTENSION [None]
